FAERS Safety Report 6866850-7 (Version None)
Quarter: 2010Q2

REPORT INFORMATION
  Report Type: 
  Country: None (occurrence: None)
  Receive Date: 20100528
  Receipt Date: 20100212
  Transmission Date: 20101027
  Serious: No
  Sender: FDA-Public Use
  Company Number: 006872

PATIENT
  Sex: Female

DRUGS (3)
  1. LACOSAMIDE [Suspect]
     Dosage: (100 MG BID ORAL)
     Route: 048
     Dates: start: 20100101
  2. DILANTIN [Concomitant]
  3. LAMICTAL [Concomitant]

REACTIONS (1)
  - MANIA [None]
